APPROVED DRUG PRODUCT: ZYKADIA
Active Ingredient: CERITINIB
Strength: 150MG
Dosage Form/Route: CAPSULE;ORAL
Application: N205755 | Product #001
Applicant: NOVARTIS PHARMACEUTICALS CORP
Approved: Apr 29, 2014 | RLD: Yes | RS: No | Type: DISCN

PATENTS:
Patent 8377921 | Expires: Nov 20, 2027
Patent 8703787 | Expires: Feb 2, 2032
Patent 8039479 | Expires: Jun 29, 2030
Patent 8399450 | Expires: Nov 20, 2027
Patent 9309229 | Expires: Jan 18, 2032
Patent 7893074 | Expires: Apr 25, 2026
Patent 7964592 | Expires: Apr 29, 2028